FAERS Safety Report 10179253 (Version 1)
Quarter: 2014Q2

REPORT INFORMATION
  Report Type: Spontaneous
  Country: US (occurrence: US)
  Receive Date: 20140519
  Receipt Date: 20140519
  Transmission Date: 20141212
  Serious: No
  Sender: FDA-Public Use
  Company Number: US-ENDO PHARMACEUTICALS INC.-AMLO20130011

PATIENT
  Age: 73 Year
  Sex: Male

DRUGS (1)
  1. AMLODIPINE BESYLATE TABLETS 5MG [Suspect]
     Indication: HYPERTENSION
     Route: 048
     Dates: start: 201304, end: 201304

REACTIONS (3)
  - Pain [Unknown]
  - Nervousness [Unknown]
  - Drug ineffective [Recovered/Resolved]
